FAERS Safety Report 10466943 (Version 1)
Quarter: 2014Q3

REPORT INFORMATION
  Report Type: Spontaneous
  Country: US (occurrence: US)
  Receive Date: 20140922
  Receipt Date: 20140922
  Transmission Date: 20150326
  Serious: Yes (Other)
  Sender: FDA-Public Use
  Company Number: PHHY2014US121445

PATIENT
  Age: 50 Year
  Sex: Female

DRUGS (14)
  1. CICLOSPORIN [Suspect]
     Active Substance: CYCLOSPORINE
     Indication: ERYTHEMA MULTIFORME
  2. METHOTREXATE [Suspect]
     Active Substance: METHOTREXATE
     Indication: ERYTHEMA MULTIFORME
  3. PREDNISONE. [Suspect]
     Active Substance: PREDNISONE
     Indication: ERYTHEMA MULTIFORME
     Dosage: 60 MG, UNK
  4. FAMCICLOVIR. [Concomitant]
     Active Substance: FAMCICLOVIR
     Dosage: 500 MG, DAILY
     Route: 048
  5. MYCOPHENOLATE MOFETIL. [Suspect]
     Active Substance: MYCOPHENOLATE MOFETIL
     Indication: ERYTHEMA MULTIFORME
  6. FAMCICLOVIR. [Concomitant]
     Active Substance: FAMCICLOVIR
     Indication: ERYTHEMA MULTIFORME
     Dosage: 500 MG, TID
  7. DOXYCYCLINE. [Suspect]
     Active Substance: DOXYCYCLINE
     Indication: ERYTHEMA MULTIFORME
  8. METHYLPREDNISOLONE [Suspect]
     Active Substance: METHYLPREDNISOLONE
     Indication: ERYTHEMA MULTIFORME
     Dosage: 125 MG, UNK
     Route: 042
  9. ACYCLOVIR. [Suspect]
     Active Substance: ACYCLOVIR
     Indication: ERYTHEMA MULTIFORME
  10. HYDROXYZINE [Suspect]
     Active Substance: HYDROXYZINE\HYDROXYZINE HYDROCHLORIDE
     Indication: ERYTHEMA MULTIFORME
  11. ADALIMUMAB [Suspect]
     Active Substance: ADALIMUMAB
     Indication: ERYTHEMA MULTIFORME
  12. HYDROXYCHLOROQUINE [Suspect]
     Active Substance: HYDROXYCHLOROQUINE
     Indication: ERYTHEMA MULTIFORME
  13. OXYCODONE HYDROCHLORIDE. [Suspect]
     Active Substance: OXYCODONE HYDROCHLORIDE
     Indication: ERYTHEMA MULTIFORME
  14. VALACYCLOVIR [Suspect]
     Active Substance: VALACYCLOVIR HYDROCHLORIDE
     Indication: ERYTHEMA MULTIFORME

REACTIONS (3)
  - Therapeutic response decreased [Unknown]
  - Osteoporosis [Unknown]
  - Drug ineffective [Unknown]
